FAERS Safety Report 16203793 (Version 6)
Quarter: 2019Q3

REPORT INFORMATION
  Report Type: Report from Study
  Country: IT (occurrence: IT)
  Receive Date: 20190416
  Receipt Date: 20190828
  Transmission Date: 20191004
  Serious: Yes (Hospitalization, Other)
  Sender: FDA-Public Use
  Company Number: IT-EISAI MEDICAL RESEARCH-EC-2019-054923

PATIENT
  Age: 17 Year
  Sex: Male
  Weight: 61.2 kg

DRUGS (14)
  1. ETOPOSIDE. [Suspect]
     Active Substance: ETOPOSIDE
     Indication: OSTEOSARCOMA
     Route: 041
     Dates: start: 20181003, end: 20190110
  2. LENVATINIB [Suspect]
     Active Substance: LENVATINIB
     Route: 048
     Dates: start: 20190718, end: 20190724
  3. DELORAZEPAM [Concomitant]
     Active Substance: DELORAZEPAM
  4. ORAMORPH [Concomitant]
     Active Substance: MORPHINE SULFATE
  5. LENVATINIB [Suspect]
     Active Substance: LENVATINIB
     Indication: OSTEOSARCOMA
     Route: 048
     Dates: start: 20181003, end: 20190514
  6. IFOSFAMIDE. [Suspect]
     Active Substance: IFOSFAMIDE
     Indication: OSTEOSARCOMA
     Route: 041
     Dates: start: 20181003, end: 20190110
  7. ENALAPRIL [Concomitant]
     Active Substance: ENALAPRIL
  8. EUTIROX [Concomitant]
     Active Substance: LEVOTHYROXINE SODIUM
  9. TWICE [Concomitant]
  10. DUROGESIC [Concomitant]
     Active Substance: FENTANYL
  11. LENVATINIB [Suspect]
     Active Substance: LENVATINIB
     Route: 048
     Dates: start: 20190517, end: 20190717
  12. MOVICOL [Concomitant]
     Active Substance: POLYETHYLENE GLYCOL 3350\POTASSIUM CHLORIDE\SODIUM BICARBONATE\SODIUM CHLORIDE
  13. RIVOTRIL [Concomitant]
     Active Substance: CLONAZEPAM
  14. LANSOX [Concomitant]
     Active Substance: LANSOPRAZOLE

REACTIONS (3)
  - Neutropenia [Recovered/Resolved]
  - White blood cell count decreased [Recovered/Resolved]
  - Dehydration [Recovered/Resolved]

NARRATIVE: CASE EVENT DATE: 20181017
